FAERS Safety Report 24527390 (Version 1)
Quarter: 2024Q4

REPORT INFORMATION
  Report Type: Report from Study
  Country: IT (occurrence: IT)
  Receive Date: 20241021
  Receipt Date: 20241021
  Transmission Date: 20250115
  Serious: No
  Sender: ROCHE
  Company Number: IT-ROCHE-3563904

PATIENT
  Age: 72 Year
  Sex: Female

DRUGS (2)
  1. MOSUNETUZUMAB [Suspect]
     Active Substance: MOSUNETUZUMAB
     Indication: Follicular lymphoma
     Dosage: DAY 1
     Route: 065
     Dates: start: 20230824
  2. MOSUNETUZUMAB [Suspect]
     Active Substance: MOSUNETUZUMAB
     Dosage: DAY 8
     Route: 065
     Dates: start: 20230831

REACTIONS (1)
  - Extrasystoles [Unknown]
